FAERS Safety Report 15711102 (Version 3)
Quarter: 2019Q1

REPORT INFORMATION
  Report Type: Report from Study
  Country: US (occurrence: US)
  Receive Date: 20181211
  Receipt Date: 20190101
  Transmission Date: 20190417
  Serious: Yes (Other)
  Sender: FDA-Public Use
  Company Number: US-TAKEDA-2017TUS022416

PATIENT
  Age: 60 Year
  Sex: Female

DRUGS (8)
  1. ALPHA LIPOIC ACID [Concomitant]
     Active Substance: .ALPHA.-LIPOIC ACID
     Dosage: UNK UNK, QD
  2. VEDOLIZUMAB [Suspect]
     Active Substance: VEDOLIZUMAB
     Indication: CROHN^S DISEASE
     Dosage: 300 MG, UNK
     Route: 042
     Dates: start: 20171020, end: 201802
  3. OMEPRAZOLE. [Concomitant]
     Active Substance: OMEPRAZOLE
     Dosage: UNK, QD
     Dates: start: 20180107
  4. OMEPRAZOLE. [Concomitant]
     Active Substance: OMEPRAZOLE
     Dosage: 40 MG, BID
     Dates: start: 201708
  5. VITAMIN B12 [Concomitant]
     Active Substance: CYANOCOBALAMIN
     Dosage: UNK
     Dates: start: 2016
  6. HUMIRA [Concomitant]
     Active Substance: ADALIMUMAB
     Dosage: UNK
  7. ISOSORBIDE. [Concomitant]
     Active Substance: ISOSORBIDE
     Indication: CARDIAC DISORDER
     Dosage: 30 MG, QD
  8. CARAFATE [Concomitant]
     Active Substance: SUCRALFATE
     Dosage: 6 G, QID
     Dates: start: 201707

REACTIONS (46)
  - Neurological symptom [Not Recovered/Not Resolved]
  - Dysgeusia [Not Recovered/Not Resolved]
  - Sensory disturbance [Unknown]
  - Blood urine present [Not Recovered/Not Resolved]
  - Neuralgia [Not Recovered/Not Resolved]
  - Stomatitis [Recovering/Resolving]
  - Bladder pain [Unknown]
  - Arthralgia [Not Recovered/Not Resolved]
  - Mass [Unknown]
  - Abdominal pain lower [Recovered/Resolved]
  - Insomnia [Not Recovered/Not Resolved]
  - Bladder prolapse [Unknown]
  - Neuropathy peripheral [Unknown]
  - Fatigue [Not Recovered/Not Resolved]
  - Headache [Not Recovered/Not Resolved]
  - Gait disturbance [Not Recovered/Not Resolved]
  - Diarrhoea [Recovered/Resolved]
  - Vomiting [Recovered/Resolved]
  - Lymph node pain [Unknown]
  - Chest pain [Not Recovered/Not Resolved]
  - Vulvovaginal burning sensation [Not Recovered/Not Resolved]
  - Urinary incontinence [Unknown]
  - Muscular weakness [Unknown]
  - Balance disorder [Unknown]
  - Oral pruritus [Recovered/Resolved]
  - Pruritus [Recovering/Resolving]
  - Pain in extremity [Unknown]
  - Feeling abnormal [Not Recovered/Not Resolved]
  - Alopecia [Unknown]
  - Haemorrhage [Recovered/Resolved]
  - Anxiety [Unknown]
  - Eye inflammation [Not Recovered/Not Resolved]
  - Renal pain [Not Recovered/Not Resolved]
  - Blood pressure increased [Unknown]
  - Paraesthesia oral [Recovering/Resolving]
  - Hypoaesthesia [Unknown]
  - Flank pain [Recovering/Resolving]
  - Hypotension [Recovered/Resolved]
  - Intervertebral disc degeneration [Unknown]
  - Nausea [Unknown]
  - Intervertebral disc protrusion [Unknown]
  - Aphasia [Unknown]
  - Rectal haemorrhage [Unknown]
  - Dysuria [Unknown]
  - Rash erythematous [Recovering/Resolving]
  - Product dose omission [Unknown]

NARRATIVE: CASE EVENT DATE: 2017
